FAERS Safety Report 4666147-X (Version None)
Quarter: 2005Q2

REPORT INFORMATION
  Report Type: 
  Country: None (occurrence: None)
  Receive Date: 20050519
  Receipt Date: 20050512
  Transmission Date: 20051028
  Serious: Yes (Other)
  Sender: FDA-Public Use
  Company Number: MX-BRISTOL-MYERS SQUIBB COMPANY-12969119

PATIENT
  Age: 57 Year
  Sex: Female

DRUGS (2)
  1. GATIFLOXACIN [Suspect]
     Indication: SINUSITIS
     Route: 048
     Dates: start: 20040401, end: 20040401
  2. AFRIN [Concomitant]
     Dosage: RHINAL LAVAGE WITH SOLUTION OF DE AN CL WITH AFRIN
     Route: 045

REACTIONS (4)
  - ELECTROCARDIOGRAM QT CORRECTED INTERVAL PROLONGED [None]
  - HEADACHE [None]
  - NAUSEA [None]
  - SYNCOPE [None]
